FAERS Safety Report 20934259 (Version 1)
Quarter: 2022Q2

REPORT INFORMATION
  Report Type: Spontaneous
  Country: US (occurrence: None)
  Receive Date: 20220607
  Receipt Date: 20220607
  Transmission Date: 20220720
  Serious: Yes (Hospitalization)
  Sender: FDA-Public Use
  Company Number: None

PATIENT
  Sex: Female

DRUGS (10)
  1. ORENCIA [Suspect]
     Active Substance: ABATACEPT
     Indication: Rheumatoid arthritis
     Dosage: FREQUENCY : WEEKLY;?
     Route: 058
     Dates: start: 20190125
  2. ORENCIA [Suspect]
     Active Substance: ABATACEPT
     Dosage: OTHER QUANTITY : 1 PEN;?FREQUENCY : WEEKLY;?
     Route: 058
  3. ALBUTEROL AER HFA [Concomitant]
  4. AMLODIPINE [Concomitant]
     Active Substance: AMLODIPINE BESYLATE
  5. AZITHROMYCIN [Concomitant]
     Active Substance: AZITHROMYCIN
  6. BENZONATATE [Concomitant]
     Active Substance: BENZONATATE
  7. METHOCARBAMOL [Concomitant]
     Active Substance: METHOCARBAMOL
  8. NAPROXEN [Concomitant]
     Active Substance: NAPROXEN
  9. NICOTINE TD [Concomitant]
  10. PREDNISONE [Concomitant]
     Active Substance: PREDNISONE

REACTIONS (1)
  - Shoulder operation [None]
